FAERS Safety Report 4385694-1 (Version None)
Quarter: 2004Q2

REPORT INFORMATION
  Report Type: 
  Country: None (occurrence: None)
  Receive Date: 20040628
  Receipt Date: 20030919
  Transmission Date: 20050107
  Serious: Yes (Death, Hospitalization)
  Sender: FDA-Public Use
  Company Number: US-AMGEN-US048414

PATIENT
  Sex: Male

DRUGS (11)
  1. ENBREL [Suspect]
     Indication: RHEUMATOID ARTHRITIS
     Route: 058
     Dates: start: 19990330, end: 20010120
  2. DIGOXIN [Concomitant]
  3. LASIX [Concomitant]
  4. COREG [Concomitant]
  5. PREDNISONE [Concomitant]
  6. EPOGEN [Concomitant]
     Route: 058
  7. FOLATE SODIUM [Concomitant]
  8. METHOTREXATE [Concomitant]
  9. FOSAMAX [Concomitant]
  10. ACIPHEX [Concomitant]
  11. NITROSTAT [Concomitant]
     Route: 055

REACTIONS (4)
  - ANGINA PECTORIS [None]
  - CARDIAC ARREST [None]
  - CARDIAC FAILURE CONGESTIVE [None]
  - MYOCARDIAL INFARCTION [None]
